FAERS Safety Report 8581922-7 (Version None)
Quarter: 2012Q3

REPORT INFORMATION
  Report Type: 
  Country: None (occurrence: None)
  Receive Date: 20120801
  Receipt Date: 20120801
  Transmission Date: 20120928
  Serious: No
  Sender: FDA-Public Use
  Company Number: None

PATIENT
  Sex: Female

DRUGS (1)
  1. EXJADE [Suspect]
     Indication: IRON OVERLOAD
     Dosage: 250MG TID PO
     Route: 048
     Dates: start: 20120727

REACTIONS (2)
  - OLIGURIA [None]
  - MICTURITION FREQUENCY DECREASED [None]
